FAERS Safety Report 22053442 (Version 1)
Quarter: 2023Q1

REPORT INFORMATION
  Report Type: Report from Study
  Country: CA (occurrence: CA)
  Receive Date: 20230302
  Receipt Date: 20230302
  Transmission Date: 20230417
  Serious: Yes (Other)
  Sender: FDA-Public Use
  Company Number: CA-TAKEDA-2021TUS032596

PATIENT
  Age: 55 Year
  Sex: Female

DRUGS (13)
  1. VEDOLIZUMAB [Suspect]
     Active Substance: VEDOLIZUMAB
     Indication: Colitis ulcerative
     Dosage: 300 MILLIGRAM
     Route: 042
     Dates: start: 20170718
  2. VEDOLIZUMAB [Suspect]
     Active Substance: VEDOLIZUMAB
     Dosage: 300 MILLIGRAM, Q4WEEKS
     Route: 042
     Dates: start: 20181206
  3. VEDOLIZUMAB [Suspect]
     Active Substance: VEDOLIZUMAB
     Dosage: 300 MILLIGRAM, Q4WEEKS
     Route: 042
  4. PENTASA [Concomitant]
     Active Substance: MESALAMINE
     Dosage: UNK
     Dates: start: 201704
  5. PREDNISONE [Concomitant]
     Active Substance: PREDNISONE
     Dosage: 60 MILLIGRAM
  6. PREDNISONE [Concomitant]
     Active Substance: PREDNISONE
     Dosage: 5 MILLIGRAM, QID
     Dates: start: 20170605
  7. HYDROCORTISONE [Concomitant]
     Active Substance: HYDROCORTISONE
     Indication: Systemic lupus erythematosus
     Dosage: 200 MILLIGRAM, QD
     Dates: start: 2007
  8. DYAZIDE [Concomitant]
     Active Substance: HYDROCHLOROTHIAZIDE\TRIAMTERENE
     Dosage: 50 MILLIGRAM, QD
  9. PANTOPRAZOLE [Concomitant]
     Active Substance: PANTOPRAZOLE
     Dosage: 40 MILLIGRAM, QD
  10. CORTIFOAM [Concomitant]
     Active Substance: HYDROCORTISONE ACETATE
     Dosage: UNK UNK, QD
     Dates: start: 201704
  11. CALCIUM [Concomitant]
     Active Substance: CALCIUM
     Dosage: UNK
  12. FERMAX [Concomitant]
     Dosage: UNK
  13. VITAMIN D [Concomitant]
     Active Substance: VITAMIN D NOS
     Dosage: UNK

REACTIONS (4)
  - Peripheral swelling [Recovering/Resolving]
  - Arthralgia [Recovering/Resolving]
  - Pain in extremity [Unknown]
  - Off label use [Unknown]

NARRATIVE: CASE EVENT DATE: 20181206
